FAERS Safety Report 17281533 (Version 1)
Quarter: 2020Q1

REPORT INFORMATION
  Report Type: Spontaneous
  Country: FR (occurrence: FR)
  Receive Date: 20200117
  Receipt Date: 20200117
  Transmission Date: 20200409
  Serious: Yes (Hospitalization)
  Sender: FDA-Public Use
  Company Number: FR-TEVA-2020-FR-1168059

PATIENT
  Age: 29 Year
  Sex: Female

DRUGS (2)
  1. LEVOFLOXACINE [Suspect]
     Active Substance: LEVOFLOXACIN
     Indication: SINUSITIS
     Dosage: UNINFORMED
     Route: 048
     Dates: start: 20191126, end: 20191207
  2. TARGOCID [Suspect]
     Active Substance: TEICOPLANIN
     Indication: SINUSITIS
     Dosage: UNINFORMED
     Route: 048
     Dates: start: 20191126, end: 20191207

REACTIONS (1)
  - Rash maculo-papular [Recovering/Resolving]

NARRATIVE: CASE EVENT DATE: 20191206
